FAERS Safety Report 4589190-8 (Version None)
Quarter: 2005Q1

REPORT INFORMATION
  Report Type: 
  Country: None (occurrence: None)
  Receive Date: 20050223
  Receipt Date: 20050210
  Transmission Date: 20050727
  Serious: Yes (Death, Life-Threatening, Hospitalization, Disabling, Other)
  Sender: FDA-Public Use
  Company Number: GB-JNJFOC-20050203067

PATIENT
  Age: 38 Year
  Sex: Female
  Weight: 37 kg

DRUGS (3)
  1. REMICADE [Suspect]
     Route: 042
  2. REMICADE [Suspect]
     Indication: CROHN'S DISEASE
     Route: 042
  3. AZATHIOPRINE [Concomitant]
     Route: 065

REACTIONS (3)
  - BRONCHOPNEUMONIA [None]
  - IMMUNOSUPPRESSION [None]
  - SEPSIS [None]
